FAERS Safety Report 8128245-8 (Version None)
Quarter: 2012Q1

REPORT INFORMATION
  Report Type: 
  Country: None (occurrence: None)
  Receive Date: 20120210
  Receipt Date: 20120207
  Transmission Date: 20120608
  Serious: Yes (Other)
  Sender: FDA-Public Use
  Company Number: US-ROCHE-793964

PATIENT
  Sex: Female
  Weight: 90.8 kg

DRUGS (3)
  1. BIRTH CONTROL PILLS NOS [Concomitant]
     Indication: PRODUCT USED FOR UNKNOWN INDICATION
  2. ACCUTANE [Suspect]
     Indication: ACNE
     Route: 048
     Dates: start: 19980101, end: 19980731
  3. ACCUTANE [Suspect]

REACTIONS (6)
  - INTESTINAL OBSTRUCTION [None]
  - DEPRESSION [None]
  - CROHN'S DISEASE [None]
  - BLOOD TRIGLYCERIDES INCREASED [None]
  - INFLAMMATORY BOWEL DISEASE [None]
  - COLITIS ULCERATIVE [None]
